FAERS Safety Report 8360317-5 (Version None)
Quarter: 2012Q2

REPORT INFORMATION
  Report Type: 
  Country: None (occurrence: None)
  Receive Date: 20120515
  Receipt Date: 20120509
  Transmission Date: 20120825
  Serious: No
  Sender: FDA-Public Use
  Company Number: US-B.I. PHARMACEUTICALS,INC./RIDGEFIELD-2011-BP-24289BP

PATIENT
  Age: 90 Year
  Sex: Male

DRUGS (7)
  1. PRADAXA [Suspect]
     Indication: ATRIAL FIBRILLATION
     Dosage: 300 MG
     Dates: start: 20110113
  2. NITROGLYCERIN [Concomitant]
  3. VITAMIN D [Concomitant]
     Dosage: 2000 U
  4. CARVEDILOL [Concomitant]
  5. INSPRA [Concomitant]
  6. CRESTOR [Concomitant]
  7. LASOPRAZOLE [Concomitant]

REACTIONS (5)
  - OEDEMA PERIPHERAL [None]
  - HYPOAESTHESIA [None]
  - PARAESTHESIA [None]
  - ARTHROPATHY [None]
  - PAIN IN EXTREMITY [None]
